FAERS Safety Report 8977061 (Version 1)
Quarter: 2012Q4

REPORT INFORMATION
  Report Type: 
  Country: LB (occurrence: LB)
  Receive Date: 20121220
  Receipt Date: 20121220
  Transmission Date: 20130627
  Serious: Yes (Other)
  Sender: FDA-Public Use
  Company Number: LB-ASTRAZENECA-2012SE93438

PATIENT
  Age: 80 Year
  Sex: Male

DRUGS (1)
  1. MERONEM [Suspect]
     Indication: PNEUMONIA
     Route: 042

REACTIONS (1)
  - Epilepsy [Unknown]
